FAERS Safety Report 5708122-X (Version None)
Quarter: 2008Q2

REPORT INFORMATION
  Report Type: 
  Country: None (occurrence: None)
  Receive Date: 20080417
  Receipt Date: 20080410
  Transmission Date: 20081010
  Serious: Yes (Life-Threatening, Disabling)
  Sender: FDA-Public Use
  Company Number: A0699237A

PATIENT
  Age: 29 Year
  Sex: Female

DRUGS (1)
  1. ADVAIR HFA [Suspect]
     Indication: ASTHMA
     Route: 055
     Dates: start: 20040101, end: 20040301

REACTIONS (9)
  - ANHEDONIA [None]
  - ASTHMA [None]
  - CHEST PAIN [None]
  - EMOTIONAL DISTRESS [None]
  - INJURY [None]
  - MENTAL DISORDER [None]
  - PAIN [None]
  - SINUS TACHYCARDIA [None]
  - STATUS ASTHMATICUS [None]
